FAERS Safety Report 5392852-6 (Version None)
Quarter: 2007Q2

REPORT INFORMATION
  Report Type: 
  Country: None (occurrence: None)
  Receive Date: 20070618
  Receipt Date: 20070711
  Transmission Date: 20071010
  Serious: Yes (Hospitalization)
  Sender: FDA-Public Use
  Company Number: L07-IRL-02729-01

PATIENT
  Age: 37 Year
  Sex: Female

DRUGS (4)
  1. CITALOPRAM HYDROBROMIDE [Suspect]
     Indication: DEPRESSION
     Dosage: 40 MG QD
  2. CITALOPRAM HYDROBROMIDE [Suspect]
     Indication: DEPRESSION
     Dosage: 10 MG QD
  3. CITALOPRAM HYDROBROMIDE [Suspect]
     Indication: DEPRESSION
  4. PROCHLORPERAZINE [Suspect]
     Indication: HYPEREMESIS GRAVIDARUM
     Dosage: 12.5 MG ONCE IM
     Route: 030

REACTIONS (7)
  - AGITATION [None]
  - ANXIETY [None]
  - CYCLOTHYMIC DISORDER [None]
  - DRUG EXPOSURE DURING PREGNANCY [None]
  - DRUG INTERACTION [None]
  - DYSTONIA [None]
  - HYPEREMESIS GRAVIDARUM [None]
